FAERS Safety Report 21595539 (Version 2)
Quarter: 2022Q4

REPORT INFORMATION
  Report Type: Report from Study
  Country: US (occurrence: US)
  Receive Date: 20221115
  Receipt Date: 20221128
  Transmission Date: 20230112
  Serious: No
  Sender: FDA-Public Use
  Company Number: US-ABBVIE-4170729

PATIENT
  Age: 51 Year
  Sex: Female
  Weight: 133.35 kg

DRUGS (5)
  1. RINVOQ [Suspect]
     Active Substance: UPADACITINIB
     Indication: Psoriatic arthropathy
     Dosage: 15 MILLIGRAM
     Route: 048
     Dates: start: 202203
  2. PFIZER-BIONTECH COVID-19 VACCINE [Concomitant]
     Active Substance: TOZINAMERAN
     Indication: COVID-19 immunisation
     Dosage: FIRST DOSE ?ONE IN ONCE
     Route: 030
     Dates: start: 20210109, end: 20210109
  3. PFIZER-BIONTECH COVID-19 VACCINE [Concomitant]
     Active Substance: TOZINAMERAN
     Indication: COVID-19 immunisation
     Dosage: THIRD DOSE ?ONE IN ONCE
     Route: 030
     Dates: start: 20210826, end: 20210826
  4. PFIZER-BIONTECH COVID-19 VACCINE [Concomitant]
     Active Substance: TOZINAMERAN
     Indication: COVID-19 immunisation
     Dosage: SECOND DOSE ?ONE IN ONCE
     Route: 030
     Dates: start: 20210130, end: 20210130
  5. MODERNA COVID-19 VACCINE [Concomitant]
     Active Substance: ELASOMERAN
     Indication: COVID-19 immunisation
     Dosage: BOOSTER DOSE
     Route: 030
     Dates: start: 20220930, end: 20220930

REACTIONS (3)
  - Arthralgia [Recovering/Resolving]
  - Psoriasis [Recovering/Resolving]
  - Skin fissures [Recovering/Resolving]

NARRATIVE: CASE EVENT DATE: 20220901
